FAERS Safety Report 21363768 (Version 1)
Quarter: 2022Q3

REPORT INFORMATION
  Report Type: Spontaneous
  Country: DE (occurrence: DE)
  Receive Date: 20220922
  Receipt Date: 20220922
  Transmission Date: 20221026
  Serious: Yes (Hospitalization)
  Sender: FDA-Public Use
  Company Number: DE-NOVARTISPH-NVSC2022DE211411

PATIENT
  Age: 81 Year
  Sex: Female
  Weight: 70 kg

DRUGS (5)
  1. PRAMIPEXOLE [Suspect]
     Active Substance: PRAMIPEXOLE
     Indication: Product used for unknown indication
     Dosage: UNK
     Route: 048
  2. IODINE [Concomitant]
     Active Substance: IODINE
     Indication: Product used for unknown indication
     Dosage: 100 UG, QD (1-0-0-0)
     Route: 048
  3. SPIRONOLACTONE [Concomitant]
     Active Substance: SPIRONOLACTONE
     Indication: Product used for unknown indication
     Dosage: 50 MG, QD (0.5-0-0-0)
     Route: 048
  4. TELMISARTAN [Concomitant]
     Active Substance: TELMISARTAN
     Indication: Product used for unknown indication
     Dosage: 40 MG, QD (1-0-0-0)
     Route: 048
  5. PANTOPRAZOLE [Concomitant]
     Active Substance: PANTOPRAZOLE
     Indication: Product used for unknown indication
     Dosage: 40 MG, QD (1-0-0-0)
     Route: 048

REACTIONS (4)
  - Vomiting [Unknown]
  - Abdominal pain [Unknown]
  - Abdominal pain [Unknown]
  - Nausea [Unknown]
